FAERS Safety Report 19176228 (Version 1)
Quarter: 2021Q2

REPORT INFORMATION
  Report Type: Spontaneous
  Country: US (occurrence: US)
  Receive Date: 20210423
  Receipt Date: 20210423
  Transmission Date: 20210717
  Serious: Yes (Hospitalization)
  Sender: FDA-Public Use
  Company Number: US-PFIZER INC-2020222195

PATIENT
  Age: 68 Year
  Sex: Male

DRUGS (2)
  1. VYNDAQEL [Suspect]
     Active Substance: TAFAMIDIS MEGLUMINE
     Dosage: 20 MG, 1X/DAY
     Route: 048
     Dates: end: 202012
  2. VYNDAQEL [Suspect]
     Active Substance: TAFAMIDIS MEGLUMINE
     Dosage: 20 MG, 3 TIMES A WEEK
     Dates: start: 20210122

REACTIONS (6)
  - Constipation [Unknown]
  - Dyspnoea [Not Recovered/Not Resolved]
  - Ocular hyperaemia [Unknown]
  - Swelling [Recovering/Resolving]
  - Hernia [Unknown]
  - Off label use [Unknown]
